FAERS Safety Report 8475044-3 (Version None)
Quarter: 2012Q2

REPORT INFORMATION
  Report Type: 
  Country: None (occurrence: None)
  Receive Date: 20120628
  Receipt Date: 20120622
  Transmission Date: 20120825
  Serious: Yes (Other)
  Sender: FDA-Public Use
  Company Number: US-PFIZER INC-2012141295

PATIENT
  Sex: Female

DRUGS (1)
  1. LIPITOR [Suspect]
     Dosage: UNK

REACTIONS (10)
  - GASTROINTESTINAL DISORDER [None]
  - HYPOACUSIS [None]
  - LOSS OF CONSCIOUSNESS [None]
  - SPINAL FRACTURE [None]
  - RENAL DISORDER [None]
  - BLOOD CALCIUM INCREASED [None]
  - HYPERTENSION [None]
  - CONSTIPATION [None]
  - UNEVALUABLE EVENT [None]
  - ARTERIAL OCCLUSIVE DISEASE [None]
